FAERS Safety Report 21061110 (Version 2)
Quarter: 2022Q3

REPORT INFORMATION
  Report Type: Spontaneous
  Country: US (occurrence: US)
  Receive Date: 20220709
  Receipt Date: 20220911
  Transmission Date: 20221027
  Serious: No
  Sender: FDA-Public Use
  Company Number: US-SA-SAC20220706001267

PATIENT
  Age: 43 Year
  Sex: Female
  Weight: 123 kg

DRUGS (6)
  1. DUPIXENT [Suspect]
     Active Substance: DUPILUMAB
     Indication: Dermatitis atopic
     Dosage: 300 MG, QOW
     Route: 058
     Dates: start: 20220623
  2. CULTURELLE [Concomitant]
     Active Substance: LACTOBACILLUS RHAMNOSUS
  3. VITAMINS NOS [Concomitant]
     Active Substance: VITAMINS
  4. MELOXICAM [Concomitant]
     Active Substance: MELOXICAM
     Dosage: 4MG
  5. VALACYCLOVIR HYDROCHLORIDE [Concomitant]
     Active Substance: VALACYCLOVIR HYDROCHLORIDE
  6. MEDROL [Concomitant]
     Active Substance: METHYLPREDNISOLONE

REACTIONS (10)
  - Paraesthesia [Unknown]
  - Muscle spasms [Unknown]
  - Dizziness [Unknown]
  - Vision blurred [Unknown]
  - Thirst [Unknown]
  - Oral herpes [Unknown]
  - Fatigue [Unknown]
  - Feeling hot [Unknown]
  - Sleep disorder [Unknown]
  - Rash macular [Unknown]

NARRATIVE: CASE EVENT DATE: 20220101
